FAERS Safety Report 21670501 (Version 1)
Quarter: 2022Q4

REPORT INFORMATION
  Report Type: Spontaneous
  Country: US (occurrence: US)
  Receive Date: 20221201
  Receipt Date: 20221201
  Transmission Date: 20230112
  Serious: Yes (Other)
  Sender: FDA-Public Use
  Company Number: US-BAUSCHBL-2022BNL002388

PATIENT
  Sex: Female

DRUGS (1)
  1. WATER [Suspect]
     Active Substance: WATER
     Indication: Preoperative care
     Route: 047

REACTIONS (2)
  - Chemical burns of eye [Unknown]
  - Wrong technique in product usage process [Unknown]

NARRATIVE: CASE EVENT DATE: 20221113
